FAERS Safety Report 8463508-8 (Version None)
Quarter: 2012Q2

REPORT INFORMATION
  Report Type: 
  Country: None (occurrence: None)
  Receive Date: 20120625
  Receipt Date: 20120619
  Transmission Date: 20120825
  Serious: Yes (Other)
  Sender: FDA-Public Use
  Company Number: US-PFIZER INC-2012148370

PATIENT
  Sex: Female
  Weight: 110 kg

DRUGS (2)
  1. NEURONTIN [Suspect]
     Indication: NEUROPATHY PERIPHERAL
     Dosage: 600 MG, 3X/DAY
  2. ZOLOFT [Suspect]
     Indication: NEUROPATHY PERIPHERAL
     Dosage: 200 MG, DAILY

REACTIONS (2)
  - PNEUMONIA [None]
  - GALLBLADDER OPERATION [None]
